FAERS Safety Report 9264085 (Version 1)
Quarter: 2013Q2

REPORT INFORMATION
  Report Type: Spontaneous
  Country: US (occurrence: US)
  Receive Date: 20130430
  Receipt Date: 20130430
  Transmission Date: 20140414
  Serious: Yes (Hospitalization)
  Sender: FDA-Public Use
  Company Number: US-AMGEN-USASP2013028699

PATIENT
  Sex: Male

DRUGS (2)
  1. NPLATE [Suspect]
     Indication: IDIOPATHIC THROMBOCYTOPENIC PURPURA
  2. PREDNISONE [Concomitant]

REACTIONS (3)
  - Chronic lymphocytic leukaemia [Unknown]
  - Diffuse large B-cell lymphoma [Unknown]
  - Fatigue [Unknown]
